FAERS Safety Report 11091225 (Version 2)
Quarter: 2017Q2

REPORT INFORMATION
  Report Type: Report from Study
  Country: US (occurrence: US)
  Receive Date: 20150505
  Receipt Date: 20170502
  Transmission Date: 20170829
  Serious: Yes (Hospitalization, Disabling, Other)
  Sender: FDA-Public Use
  Company Number: PHEH2015US008231

PATIENT
  Sex: Male

DRUGS (1)
  1. TASIGNA [Suspect]
     Active Substance: NILOTINIB
     Indication: PRODUCT USED FOR UNKNOWN INDICATION
     Dosage: 200 MG, QD
     Route: 048

REACTIONS (5)
  - Metastatic malignant melanoma [Unknown]
  - Metastases to bone [Unknown]
  - Metastases to liver [Unknown]
  - Chronic obstructive pulmonary disease [Recovering/Resolving]
  - Metastases to lung [Unknown]
